FAERS Safety Report 8432613-4 (Version None)
Quarter: 2012Q2

REPORT INFORMATION
  Report Type: 
  Country: None (occurrence: None)
  Receive Date: 20120607
  Receipt Date: 20120207
  Transmission Date: 20120825
  Serious: No
  Sender: FDA-Public Use
  Company Number: USA/USA/12/0023890

PATIENT
  Sex: Male

DRUGS (1)
  1. FAMOTIDINE [Suspect]
     Indication: PRODUCT USED FOR UNKNOWN INDICATION
     Dosage: 40 MG, 1 IN 1 D, ORAL
     Route: 048

REACTIONS (1)
  - MEDICATION RESIDUE [None]
